FAERS Safety Report 7798049 (Version 8)
Quarter: 2014Q3

REPORT INFORMATION
  Report Type: Report from Study
  Country: JP (occurrence: JP)
  Receive Date: 20110203
  Receipt Date: 20140909
  Transmission Date: 20150326
  Serious: Yes (Life-Threatening, Hospitalization)
  Sender: FDA-Public Use
  Company Number: JP-B.I. PHARMACEUTICALS,INC./RIDGEFIELD-2011-DE-00746GD

PATIENT
  Age: 71 Year
  Sex: Male

DRUGS (5)
  1. MAGNESIUM OXIDE. [Concomitant]
     Active Substance: MAGNESIUM OXIDE
     Route: 065
  2. MOBIC [Suspect]
     Active Substance: MELOXICAM
     Indication: BACK PAIN
     Dosage: 10 MG
     Route: 048
     Dates: start: 2000
  3. MOBIC [Suspect]
     Active Substance: MELOXICAM
     Indication: OSTEOARTHROPATHY
  4. PANTOSIN [Concomitant]
     Active Substance: PANTETHINE
     Route: 065
  5. BUP-4 [Concomitant]
     Active Substance: PROPIVERINE
     Route: 065

REACTIONS (5)
  - Small intestinal stenosis [Not Recovered/Not Resolved]
  - Anaemia [Not Recovered/Not Resolved]
  - Haematochezia [Not Recovered/Not Resolved]
  - Bladder cancer [Not Recovered/Not Resolved]
  - Intestinal diaphragm disease [Unknown]

NARRATIVE: CASE EVENT DATE: 200308
